FAERS Safety Report 23652711 (Version 3)
Quarter: 2024Q3

REPORT INFORMATION
  Report Type: Spontaneous
  Country: US (occurrence: US)
  Receive Date: 20240320
  Receipt Date: 20240722
  Transmission Date: 20241016
  Serious: No
  Sender: ELI LILLY AND CO
  Company Number: US-ELI_LILLY_AND_COMPANY-US202403010542

PATIENT
  Age: 68 Year
  Sex: Female

DRUGS (2)
  1. OMVOH [Suspect]
     Active Substance: MIRIKIZUMAB-MRKZ
     Indication: Colitis ulcerative
     Dosage: UNK UNK, UNKNOWN
     Route: 065
     Dates: start: 20240226
  2. OMVOH [Suspect]
     Active Substance: MIRIKIZUMAB-MRKZ
     Indication: Colitis ulcerative
     Dosage: UNK UNK, UNKNOWN
     Route: 065
     Dates: start: 20240520

REACTIONS (9)
  - Constipation [Unknown]
  - Fatigue [Unknown]
  - Pruritus [Unknown]
  - Erythema [Unknown]
  - Night sweats [Unknown]
  - Drug ineffective [Unknown]
  - Colitis ulcerative [Unknown]
  - Myalgia [Unknown]
  - Inflammatory marker increased [Unknown]

NARRATIVE: CASE EVENT DATE: 20240401
